FAERS Safety Report 14467387 (Version 1)
Quarter: 2018Q1

REPORT INFORMATION
  Report Type: Spontaneous
  Country: US (occurrence: US)
  Receive Date: 20180131
  Receipt Date: 20180131
  Transmission Date: 20180509
  Serious: Yes (Life-Threatening, Hospitalization, Other)
  Sender: FDA-Public Use
  Company Number: US-AUROBINDO-AUR-APL-2018-003316

PATIENT
  Age: 2 Month

DRUGS (2)
  1. AMIODARONE HYDROCHLORIDE. [Suspect]
     Active Substance: AMIODARONE HYDROCHLORIDE
     Indication: JUNCTIONAL ECTOPIC TACHYCARDIA
     Dosage: UNK
  2. ESMOLOL [Suspect]
     Active Substance: ESMOLOL HYDROCHLORIDE
     Indication: JUNCTIONAL ECTOPIC TACHYCARDIA
     Dosage: UNK

REACTIONS (1)
  - Drug ineffective [Unknown]
